FAERS Safety Report 5289035-7 (Version None)
Quarter: 2007Q2

REPORT INFORMATION
  Report Type: 
  Country: None (occurrence: None)
  Receive Date: 20070405
  Receipt Date: 20070327
  Transmission Date: 20071010
  Serious: Yes (Hospitalization)
  Sender: FDA-Public Use
  Company Number: FR-PFIZER INC-2007025451

PATIENT
  Age: 81 Year
  Sex: Male
  Weight: 88 kg

DRUGS (17)
  1. ALDACTONE [Suspect]
     Indication: ESSENTIAL HYPERTENSION
     Route: 048
  2. FOSINOPRIL SODIUM AND HYDROCHLOROTHIAZIDE [Suspect]
     Indication: ESSENTIAL HYPERTENSION
     Dosage: TEXT:1 DOSE FORM-FREQ:DAILY
     Route: 048
  3. COMBIVENT [Concomitant]
     Route: 048
  4. DESLORATADINE [Concomitant]
     Route: 048
  5. NEBILOX [Concomitant]
     Route: 048
  6. TRAMADOL HCL [Concomitant]
  7. PARACETAMOL [Concomitant]
  8. COUMADIN [Concomitant]
  9. NITROGLYCERIN [Concomitant]
  10. ALLOPURINOL [Concomitant]
  11. LEVOTHYROXINE SODIUM [Concomitant]
  12. EXELON [Concomitant]
  13. EQUANIL [Concomitant]
  14. OMEPRAZOLE [Concomitant]
  15. TEMESTA [Concomitant]
  16. BIOFLAVONOIDS [Concomitant]
  17. TRANSIPEG [Concomitant]

REACTIONS (4)
  - BLOOD POTASSIUM INCREASED [None]
  - BLOOD SODIUM DECREASED [None]
  - BLOOD UREA INCREASED [None]
  - PSYCHOMOTOR HYPERACTIVITY [None]
